FAERS Safety Report 24879799 (Version 2)
Quarter: 2025Q1

REPORT INFORMATION
  Report Type: Spontaneous
  Country: JP (occurrence: JP)
  Receive Date: 20250123
  Receipt Date: 20250128
  Transmission Date: 20250408
  Serious: Yes (Life-Threatening, Hospitalization, Other)
  Sender: PFIZER
  Company Number: JP-MLMSERVICE-20250114-PI348034-00270-1

PATIENT
  Age: 45 Year
  Sex: Female

DRUGS (9)
  1. METHOTREXATE SODIUM [Suspect]
     Active Substance: METHOTREXATE SODIUM
     Indication: Mixed connective tissue disease
     Dosage: 8 MG, WEEKLY
  2. METHOTREXATE SODIUM [Suspect]
     Active Substance: METHOTREXATE SODIUM
     Indication: Polyarthritis
     Dosage: 6 MG, WEEKLY
  3. PREDNISOLONE [Suspect]
     Active Substance: PREDNISOLONE
     Indication: Mixed connective tissue disease
     Dosage: 30 MG, 1X/DAY
  4. PREDNISOLONE [Suspect]
     Active Substance: PREDNISOLONE
     Dosage: 10 MG, 1X/DAY
  5. PREDNISOLONE [Suspect]
     Active Substance: PREDNISOLONE
     Dosage: 40 MG, 1X/DAY
     Route: 048
  6. PREDNISOLONE [Suspect]
     Active Substance: PREDNISOLONE
     Dosage: 20 MG, 1X/DAY
     Route: 048
  7. PREDNISOLONE [Suspect]
     Active Substance: PREDNISOLONE
     Dosage: 15 MG, 1X/DAY
     Route: 048
  8. TACROLIMUS [Suspect]
     Active Substance: TACROLIMUS
     Indication: Mixed connective tissue disease
     Dosage: 3 MG, 1X/DAY
  9. TACROLIMUS [Suspect]
     Active Substance: TACROLIMUS
     Indication: Polyarthritis
     Dosage: 3 MG, 1X/DAY

REACTIONS (5)
  - Hepatic failure [Recovering/Resolving]
  - Histoplasmosis disseminated [Recovering/Resolving]
  - Panniculitis [Recovering/Resolving]
  - Cytopenia [Recovering/Resolving]
  - Off label use [Unknown]
